FAERS Safety Report 12891175 (Version 1)
Quarter: 2016Q4

REPORT INFORMATION
  Report Type: Spontaneous
  Country: CN (occurrence: CN)
  Receive Date: 20161027
  Receipt Date: 20161027
  Transmission Date: 20170207
  Serious: Yes (Life-Threatening)
  Sender: FDA-Public Use
  Company Number: CN-AIRGAS USA-1058994

PATIENT
  Age: 52 Year
  Sex: Female

DRUGS (1)
  1. CARBON DIOXIDE. [Suspect]
     Active Substance: CARBON DIOXIDE
     Route: 001

REACTIONS (1)
  - Air embolism [Recovered/Resolved]
